FAERS Safety Report 6634276-7 (Version None)
Quarter: 2010Q1

REPORT INFORMATION
  Report Type: 
  Country: None (occurrence: None)
  Receive Date: 20100315
  Receipt Date: 20100308
  Transmission Date: 20100710
  Serious: Yes (Death)
  Sender: FDA-Public Use
  Company Number: JP-ASTRAZENECA-2010SE10749

PATIENT
  Sex: Male
  Weight: 70 kg

DRUGS (15)
  1. SEROQUEL [Suspect]
     Route: 048
  2. MICARDIS [Suspect]
     Route: 048
  3. PLETAL [Suspect]
     Route: 048
  4. FAMOSTAGINE [Concomitant]
  5. CARDENALIN [Concomitant]
  6. LASIX [Concomitant]
  7. LIPITOR [Concomitant]
  8. VITAMEDIN [Concomitant]
  9. LEVOMEPROMAZINE [Concomitant]
  10. ZOPICLONE [Concomitant]
  11. NITRAZEPAM [Concomitant]
  12. LIDOCAINE [Concomitant]
  13. ATROPINE SULFATE [Concomitant]
  14. TRIAZOLAM [Concomitant]
  15. FLUNITRAZEPAM [Concomitant]

REACTIONS (1)
  - DEATH [None]
